FAERS Safety Report 7999198-8 (Version None)
Quarter: 2011Q4

REPORT INFORMATION
  Report Type: 
  Country: None (occurrence: None)
  Receive Date: 20111221
  Receipt Date: 20111219
  Transmission Date: 20120403
  Serious: Yes (Death)
  Sender: FDA-Public Use
  Company Number: US-PFIZER INC-2011308980

PATIENT
  Age: 48 Year
  Sex: Male

DRUGS (2)
  1. SITAGLIPTIN AND METFORMIN HYDROCHLORIDE [Suspect]
  2. AMLODIPINE BESYLATE [Suspect]

REACTIONS (1)
  - COMPLETED SUICIDE [None]
